FAERS Safety Report 8212091-0 (Version None)
Quarter: 2012Q1

REPORT INFORMATION
  Report Type: 
  Country: None (occurrence: None)
  Receive Date: 20120315
  Receipt Date: 20120312
  Transmission Date: 20120608
  Serious: Yes (Hospitalization)
  Sender: FDA-Public Use
  Company Number: PHHY2012KR022032

PATIENT
  Sex: Male
  Weight: 53 kg

DRUGS (3)
  1. TRAMADOL HCL [Concomitant]
     Indication: ORAL PAIN
     Dosage: 50 MG, UNK
     Dates: start: 20120203
  2. AMBPIBACTAM [Concomitant]
     Indication: INFECTION
     Dosage: 3 G, UNK
     Dates: start: 20120203
  3. AFINITOR [Suspect]
     Indication: RENAL CELL CARCINOMA
     Dosage: 10 MG, DAILY
     Route: 048
     Dates: start: 20111123, end: 20120201

REACTIONS (4)
  - TENDERNESS [None]
  - ORAL PAIN [None]
  - PAIN IN JAW [None]
  - GINGIVAL SWELLING [None]
